FAERS Safety Report 15808364 (Version 1)
Quarter: 2019Q1

REPORT INFORMATION
  Report Type: Report from Study
  Country: NL (occurrence: NL)
  Receive Date: 20190110
  Receipt Date: 20190110
  Transmission Date: 20190417
  Serious: Yes (Hospitalization)
  Sender: FDA-Public Use
  Company Number: NL-PFIZER INC-2019010905

PATIENT
  Age: 78 Year
  Sex: Female

DRUGS (1)
  1. CRIZOTINIB [Suspect]
     Active Substance: CRIZOTINIB
     Indication: NON-SMALL CELL LUNG CANCER
     Dosage: 250 MG, UNK
     Route: 048
     Dates: start: 20181128

REACTIONS (1)
  - Large intestine perforation [Recovering/Resolving]

NARRATIVE: CASE EVENT DATE: 20181231
